FAERS Safety Report 24246974 (Version 4)
Quarter: 2025Q3

REPORT INFORMATION
  Report Type: Spontaneous
  Country: EU (occurrence: EU)
  Receive Date: 20240826
  Receipt Date: 20250728
  Transmission Date: 20251021
  Serious: Yes (Hospitalization, Other)
  Sender: AUROBINDO
  Company Number: EU-AUROBINDO-AUR-APL-2024-040957

PATIENT
  Age: 18 Year
  Sex: Male

DRUGS (8)
  1. ARIPIPRAZOLE [Suspect]
     Active Substance: ARIPIPRAZOLE
     Indication: Aicardi-Goutieres syndrome
     Dosage: 10 MILLIGRAM, DAILY, SLIGHT DOSE INCREASE
     Route: 048
     Dates: start: 202105, end: 202106
  2. ARIPIPRAZOLE [Suspect]
     Active Substance: ARIPIPRAZOLE
     Indication: Psychiatric symptom
     Dosage: 2.5 MILLIGRAM, ONCE A DAY (DOSE REDUCED))
     Route: 048
     Dates: start: 202106
  3. DIAZEPAM [Suspect]
     Active Substance: DIAZEPAM
     Indication: Aicardi-Goutieres syndrome
     Dosage: 2.5 MILLIGRAM, 3 TIMES A DAY
     Route: 048
     Dates: start: 202105, end: 202106
  4. DIAZEPAM [Suspect]
     Active Substance: DIAZEPAM
     Indication: Psychiatric symptom
     Route: 048
     Dates: start: 202106
  5. VALPROIC ACID [Suspect]
     Active Substance: VALPROIC ACID
     Indication: Aicardi-Goutieres syndrome
     Route: 065
  6. ARIPIPRAZOLE [Suspect]
     Active Substance: ARIPIPRAZOLE
     Indication: Aicardi-Goutieres syndrome
     Dosage: 9.75 MILLIGRAM, ONCE A DAY (SLIGHT DOSE INCREASE)
     Route: 030
  7. DIAZEPAM [Concomitant]
     Active Substance: DIAZEPAM
     Indication: Aicardi-Goutieres syndrome
     Dosage: 10 MILLIGRAM, ONCE A DAY (5 MG, BID)
     Route: 065
  8. DIAZEPAM [Concomitant]
     Active Substance: DIAZEPAM
     Dosage: 5 MILLIGRAM, ONCE A DAY (5 MG, DAILY)
     Route: 065

REACTIONS (7)
  - Psychotic symptom [Recovering/Resolving]
  - Sexually inappropriate behaviour [Recovering/Resolving]
  - Irritability [Recovering/Resolving]
  - Condition aggravated [Recovering/Resolving]
  - Drug ineffective [Unknown]
  - Product use in unapproved indication [Unknown]
  - Off label use [Unknown]

NARRATIVE: CASE EVENT DATE: 20210401
